FAERS Safety Report 4340207-5 (Version None)
Quarter: 2004Q2

REPORT INFORMATION
  Report Type: 
  Country: None (occurrence: None)
  Receive Date: 20040416
  Receipt Date: 20040413
  Transmission Date: 20050107
  Serious: Yes (Hospitalization)
  Sender: FDA-Public Use
  Company Number: CA-MERCK-0404CAN00055

PATIENT

DRUGS (1)
  1. VIOXX [Suspect]
     Route: 048

REACTIONS (3)
  - BLOOD LACTATE DEHYDROGENASE INCREASED [None]
  - CREATININE RENAL CLEARANCE DECREASED [None]
  - RHABDOMYOLYSIS [None]
